FAERS Safety Report 9477810 (Version 2)
Quarter: 2013Q3

REPORT INFORMATION
  Report Type: Spontaneous
  Country: FR (occurrence: FR)
  Receive Date: 20130827
  Receipt Date: 20130927
  Transmission Date: 20140515
  Serious: Yes (Life-Threatening, Hospitalization)
  Sender: FDA-Public Use
  Company Number: FR-BRISTOL-MYERS SQUIBB COMPANY-19204528

PATIENT
  Age: 73 Year
  Sex: Female
  Weight: 74 kg

DRUGS (1)
  1. COUMADIN TABS 2 MG [Suspect]
     Dosage: TAKEN 15MG INSTEAD OF 6MG
     Dates: start: 20130530, end: 20130708

REACTIONS (3)
  - Medication error [Unknown]
  - International normalised ratio increased [Unknown]
  - Overdose [Unknown]
